FAERS Safety Report 9680128 (Version 1)
Quarter: 2013Q4

REPORT INFORMATION
  Report Type: Spontaneous
  Country: CA (occurrence: CA)
  Receive Date: 20131111
  Receipt Date: 20131111
  Transmission Date: 20140711
  Serious: Yes (Other)
  Sender: FDA-Public Use
  Company Number: CA-AMGEN-CANSP2013078196

PATIENT
  Age: 85 Year
  Sex: Female

DRUGS (10)
  1. PROLIA [Suspect]
     Indication: PRODUCT USED FOR UNKNOWN INDICATION
     Dosage: UNK
     Route: 065
     Dates: start: 20130325
  2. CITALOPRAM [Concomitant]
  3. VITAMIN D                          /00107901/ [Concomitant]
  4. FUROSEMIDE [Concomitant]
     Dosage: 20 MG, UNK
  5. PROPANOLOL                         /00030001/ [Concomitant]
     Dosage: 20 MG, UNK
  6. PANTOPRAZOLE                       /01263204/ [Concomitant]
     Dosage: 40 MG, UNK
  7. BISACODYL [Concomitant]
     Dosage: 5 MG, UNK
  8. DOCUSATE SODIUM [Concomitant]
     Dosage: 100 MG, UNK
  9. PROTYLOL [Concomitant]
     Dosage: 10 MG, UNK
  10. ACETAMINOPHEN [Concomitant]
     Dosage: PRN

REACTIONS (1)
  - External ear cellulitis [Unknown]
